FAERS Safety Report 15276245 (Version 2)
Quarter: 2018Q3

REPORT INFORMATION
  Report Type: Spontaneous
  Country: US (occurrence: US)
  Receive Date: 20180814
  Receipt Date: 20180822
  Transmission Date: 20181010
  Serious: No
  Sender: FDA-Public Use
  Company Number: US-MYLANLABS-2018M1060488

PATIENT
  Sex: Female
  Weight: 104 kg

DRUGS (1)
  1. ESTRADIOL TRANSDERMAL SYSTEM [Suspect]
     Active Substance: ESTRADIOL
     Indication: HORMONE REPLACEMENT THERAPY
     Dosage: 0.75 MG, UNK
     Route: 062
     Dates: start: 201805

REACTIONS (3)
  - Hormone level abnormal [Unknown]
  - Drug effect incomplete [Unknown]
  - Product adhesion issue [Unknown]
